FAERS Safety Report 8567088-8 (Version None)
Quarter: 2012Q3

REPORT INFORMATION
  Report Type: 
  Country: None (occurrence: None)
  Receive Date: 20120803
  Receipt Date: 20111202
  Transmission Date: 20120928
  Serious: No
  Sender: FDA-Public Use
  Company Number: US-ABBOTT-11P-163-0880602-00

PATIENT
  Sex: Female
  Weight: 90.8 kg

DRUGS (16)
  1. PROVIGEL [Concomitant]
     Indication: NARCOLEPSY
  2. CRESTOR [Concomitant]
     Indication: BLOOD CHOLESTEROL
  3. TOPIRAMATE [Concomitant]
     Indication: MIGRAINE
  4. NIASPAN [Suspect]
     Indication: CORONARY ARTERY DISEASE
  5. CHERATUSSIN [Concomitant]
     Indication: LUNG DISORDER
  6. NIASPAN [Suspect]
     Indication: BLOOD CHOLESTEROL
     Dates: start: 20110401
  7. NEXIUM [Concomitant]
     Indication: GASTROOESOPHAGEAL REFLUX DISEASE
  8. GLYCOPYRROLATE [Concomitant]
     Indication: IRRITABLE BOWEL SYNDROME
  9. XANAX [Concomitant]
     Indication: PANIC ATTACK
  10. SERTALINE [Concomitant]
     Indication: DEPRESSION
  11. TAZANIDINE [Concomitant]
  12. ONDANSETERON [Concomitant]
     Indication: NAUSEA
  13. METOPROLOL TARTRATE [Concomitant]
     Indication: HYPERTENSION
  14. XANAX [Concomitant]
     Indication: ANXIETY
  15. TAZANIDINE [Concomitant]
     Indication: MUSCLE SPASMS
  16. TAZTIA XT [Concomitant]
     Indication: HYPERTENSION

REACTIONS (4)
  - HEAT RASH [None]
  - FLUSHING [None]
  - DYSPEPSIA [None]
  - PRURITUS [None]
